FAERS Safety Report 6057882-X (Version None)
Quarter: 2009Q1

REPORT INFORMATION
  Report Type: 
  Country: None (occurrence: None)
  Receive Date: 20090126
  Receipt Date: 20090116
  Transmission Date: 20090719
  Serious: Yes (Other)
  Sender: FDA-Public Use
  Company Number: 56099

PATIENT
  Sex: Male
  Weight: 200 kg

DRUGS (5)
  1. METHOTREXATE [Suspect]
     Indication: RHEUMATOID ARTHRITIS
     Dosage: 0.8ML, 1MI, SUBCUTANEOUS INJECTION
     Route: 058
  2. LISINOPRIL AND HYDROCHLOROTHIAZIDE [Concomitant]
  3. .. [Concomitant]
  4. GENERIC PLAQUENIL [Concomitant]
  5. FOLIC ACID [Concomitant]

REACTIONS (1)
  - MEDICATION ERROR [None]
